FAERS Safety Report 6751654-6 (Version None)
Quarter: 2010Q2

REPORT INFORMATION
  Report Type: 
  Country: None (occurrence: None)
  Receive Date: 20100602
  Receipt Date: 20100524
  Transmission Date: 20101027
  Serious: Yes (Other)
  Sender: FDA-Public Use
  Company Number: A0861037A

PATIENT
  Age: 24 Year
  Sex: Male

DRUGS (2)
  1. LAMICTAL XR [Suspect]
     Dosage: 300MG PER DAY
     Route: 048
     Dates: start: 20100201
  2. EFFEXOR XR [Concomitant]

REACTIONS (2)
  - CONVULSION [None]
  - MALAISE [None]
